FAERS Safety Report 17001703 (Version 2)
Quarter: 2019Q4

REPORT INFORMATION
  Report Type: Spontaneous
  Country: US (occurrence: US)
  Receive Date: 20191106
  Receipt Date: 20191206
  Transmission Date: 20200122
  Serious: Yes (Hospitalization)
  Sender: FDA-Public Use
  Company Number: NVSC2019US024679

PATIENT
  Age: 13 Year
  Sex: Male

DRUGS (3)
  1. KYMRIAH [Suspect]
     Active Substance: TISAGENLECLEUCEL
     Indication: ACUTE LYMPHOCYTIC LEUKAEMIA RECURRENT
     Dosage: UNK
     Route: 065
  2. IFOSFAMIDE. [Concomitant]
     Active Substance: IFOSFAMIDE
     Indication: CHEMOTHERAPY
     Dosage: UNK
     Route: 065
  3. ETOPOSIDE. [Concomitant]
     Active Substance: ETOPOSIDE
     Indication: CHEMOTHERAPY
     Dosage: UNK
     Route: 065

REACTIONS (20)
  - Confusional state [Unknown]
  - Metabolic acidosis [Unknown]
  - Neutropenia [Unknown]
  - Aphasia [Recovered/Resolved]
  - Pyrexia [Unknown]
  - Cytokine release syndrome [Recovered/Resolved]
  - Pulmonary oedema [Unknown]
  - Sleep deficit [Unknown]
  - Delirium [Recovered/Resolved]
  - Confusional arousal [Unknown]
  - Language disorder [Unknown]
  - Respiratory distress [Unknown]
  - Disorientation [Recovered/Resolved]
  - Pyrexia [Recovered/Resolved]
  - Tachypnoea [Unknown]
  - Hypoxia [Unknown]
  - Hallucination [Unknown]
  - Nervous system disorder [Unknown]
  - Hypotension [Unknown]
  - Coagulopathy [Unknown]
